FAERS Safety Report 4292435-5 (Version None)
Quarter: 2004Q1

REPORT INFORMATION
  Report Type: 
  Country: None (occurrence: None)
  Receive Date: 20040126
  Receipt Date: 20030904
  Transmission Date: 20041129
  Serious: No
  Sender: FDA-Public Use
  Company Number: USA030742796

PATIENT
  Age: 56 Year
  Sex: Female
  Weight: 48 kg

DRUGS (27)
  1. FORTEO [Suspect]
     Indication: OSTEOPOROSIS
     Dosage: 20 UG/1 DAY
     Dates: start: 20030708, end: 20030808
  2. KEPRA (LEVETIRACETAM) [Concomitant]
  3. TOPAMAX [Concomitant]
  4. METHADONE HCL [Concomitant]
  5. LORCET-HD [Concomitant]
  6. METHOCARBAMOL [Concomitant]
  7. NEXIUM [Concomitant]
  8. CALCIUM [Concomitant]
  9. PREMARIN [Concomitant]
  10. EFFEXOR [Concomitant]
  11. WELLBUTRIN (BUPROFEN HYDROCHLORIDE) [Concomitant]
  12. SEROQUEL [Concomitant]
  13. TRAZODONE HCL [Concomitant]
  14. THIAZIDE [Concomitant]
  15. DYAZIDE [Concomitant]
  16. VITAMIN D [Concomitant]
  17. MAGNESIUM OXIDE [Concomitant]
  18. NIZORAL [Concomitant]
  19. KENALOG [Concomitant]
  20. DESONIDE [Concomitant]
  21. CELEBREX [Concomitant]
  22. FISH OIL [Concomitant]
  23. AMOXICILLIN [Concomitant]
  24. FLUOCINONIDE [Concomitant]
  25. ZELNORM (ZELNORM) [Concomitant]
  26. LACTULOSE [Concomitant]
  27. COLACE (DOCUSATE SODIUM) [Concomitant]

REACTIONS (3)
  - ABDOMINAL PAIN [None]
  - CONSTIPATION [None]
  - NAUSEA [None]
